FAERS Safety Report 7794033 (Version 4)
Quarter: 2016Q3

REPORT INFORMATION
  Report Type: Report from Study
  Country: TW (occurrence: TW)
  Receive Date: 20110201
  Receipt Date: 20160831
  Transmission Date: 20161109
  Serious: Yes (Hospitalization)
  Sender: FDA-Public Use
  Company Number: TW-ASTRAZENECA-2011SE05041

PATIENT
  Age: 74 Year
  Sex: Male
  Weight: 110 kg

DRUGS (6)
  1. COLCHICINE. [Concomitant]
     Active Substance: COLCHICINE
     Route: 065
     Dates: start: 20060207
  2. NAPROXEN. [Suspect]
     Active Substance: NAPROXEN
     Indication: OSTEOARTHRITIS
     Route: 048
     Dates: start: 20080108, end: 20100816
  3. AMARYL [Concomitant]
     Active Substance: GLIMEPIRIDE
     Route: 065
     Dates: start: 20081209
  4. APROVEL [Concomitant]
     Active Substance: IRBESARTAN
     Route: 065
     Dates: start: 20060207
  5. NAPROXEN. [Suspect]
     Active Substance: NAPROXEN
     Indication: RHEUMATOID ARTHRITIS
     Route: 048
     Dates: start: 20080108, end: 20100816
  6. NEXIUM [Suspect]
     Active Substance: ESOMEPRAZOLE MAGNESIUM
     Route: 048
     Dates: start: 20080108, end: 20100816

REACTIONS (1)
  - Coronary artery disease [Recovering/Resolving]

NARRATIVE: CASE EVENT DATE: 20100726
